FAERS Safety Report 23362137 (Version 1)
Quarter: 2024Q1

REPORT INFORMATION
  Report Type: Spontaneous
  Country: US (occurrence: None)
  Receive Date: 20240102
  Receipt Date: 20240102
  Transmission Date: 20240410
  Serious: Yes (Other)
  Sender: FDA-Public Use
  Company Number: None

PATIENT
  Age: 64 Year
  Sex: Female
  Weight: 55.35 kg

DRUGS (2)
  1. FLUOROURACIL [Suspect]
     Active Substance: FLUOROURACIL
     Indication: Colon cancer
     Dosage: OTHER FREQUENCY : OVER 48 HOURS;?
     Route: 041
     Dates: start: 20230209
  2. LEUCOVORIN [Concomitant]
     Active Substance: LEUCOVORIN\LEUCOVORIN CALCIUM
     Dates: start: 20230209

REACTIONS (4)
  - Hypoaesthesia [None]
  - Paraesthesia [None]
  - Paraesthesia oral [None]
  - Aphasia [None]

NARRATIVE: CASE EVENT DATE: 20231206
